FAERS Safety Report 19282614 (Version 1)
Quarter: 2021Q2

REPORT INFORMATION
  Report Type: Spontaneous
  Country: FR (occurrence: FR)
  Receive Date: 20210520
  Receipt Date: 20210520
  Transmission Date: 20210717
  Serious: Yes (Other)
  Sender: FDA-Public Use
  Company Number: FR-MYLANLABS-2019M1107725

PATIENT
  Age: 46 Year
  Sex: Female

DRUGS (3)
  1. BROMAZEPAM [Suspect]
     Active Substance: BROMAZEPAM
     Indication: PRODUCT USED FOR UNKNOWN INDICATION
     Dosage: 10 DOSAGE FORM, TOTAL
     Route: 048
     Dates: start: 20180306, end: 20180306
  2. BROMAZEPAM [Suspect]
     Active Substance: BROMAZEPAM
     Dosage: 5 DOSAGE FORM, TOTAL
     Route: 048
     Dates: start: 20201220, end: 20201220
  3. DESLORATADINE. [Suspect]
     Active Substance: DESLORATADINE
     Indication: PRODUCT USED FOR UNKNOWN INDICATION
     Dosage: 30 DOSAGE FORM, TOTAL
     Route: 048
     Dates: start: 20201220, end: 20201220

REACTIONS (4)
  - Somnolence [Recovered/Resolved]
  - Suicide attempt [Unknown]
  - Asthenia [Recovered/Resolved]
  - Toxicity to various agents [Recovered/Resolved]

NARRATIVE: CASE EVENT DATE: 20180306
